FAERS Safety Report 20323582 (Version 4)
Quarter: 2022Q2

REPORT INFORMATION
  Report Type: Spontaneous
  Country: IT (occurrence: IT)
  Receive Date: 20220111
  Receipt Date: 20220627
  Transmission Date: 20220720
  Serious: Yes (Hospitalization, Other)
  Sender: FDA-Public Use
  Company Number: IT-CELGENE-ITA-20211208794

PATIENT
  Age: 80 Year
  Sex: Male

DRUGS (10)
  1. AZACITIDINE [Suspect]
     Active Substance: AZACITIDINE
     Indication: Acute myeloid leukaemia
     Dosage: 75 MICROGRAM/SQ. METER
     Route: 065
  2. AZACITIDINE [Suspect]
     Active Substance: AZACITIDINE
     Dosage: UNK, DOSE OF 75 MG PER SQUARE METER OF BODY-SURFACE AREA (BSA) FROM DAY 1-7
     Route: 058
  3. AZACITIDINE [Suspect]
     Active Substance: AZACITIDINE
     Dosage: 75 MILLIGRAM/SQ. METER, CYCLE (OF BODY-SURFACE AREA FROM DAY 1-7 OF 28 DAYS CYCLE)
     Route: 058
  4. VENETOCLAX [Suspect]
     Active Substance: VENETOCLAX
     Indication: Acute myeloid leukaemia
     Dosage: UNK
     Route: 065
  5. VENETOCLAX [Suspect]
     Active Substance: VENETOCLAX
     Dosage: UNK, 100 MG ON DAY 1, 200 MG ON DAY 2 AND FROM DAY 3 ON THETARGET DOSE OF 400 M
     Route: 048
  6. VENETOCLAX [Suspect]
     Active Substance: VENETOCLAX
     Dosage: 400 MILLIGRAM, QD, 100 MG ON DAY 1, 200 MG ON DAY 2 AND FROM DAY 3 ON THE
     Route: 048
  7. VENETOCLAX [Suspect]
     Active Substance: VENETOCLAX
     Dosage: 100 MILLIGRAM, QD (ON DAY 1)
     Route: 048
  8. VENETOCLAX [Suspect]
     Active Substance: VENETOCLAX
     Dosage: 200 MILLIGRAM, QD (ON DAY 2)
     Route: 048
  9. VENETOCLAX [Suspect]
     Active Substance: VENETOCLAX
     Dosage: 400 MILLIGRAM, QD (ON DAY 3)
     Route: 048
  10. VENETOCLAX [Suspect]
     Active Substance: VENETOCLAX
     Dosage: 400 MILLIGRAM, QD
     Route: 048

REACTIONS (4)
  - Melaena [Unknown]
  - Off label use [Not Recovered/Not Resolved]
  - Pancytopenia [Unknown]
  - Angiodysplasia [Unknown]
